FAERS Safety Report 22270314 (Version 1)
Quarter: 2023Q2

REPORT INFORMATION
  Report Type: Other
  Country: None (occurrence: US)
  Receive Date: 20230501
  Receipt Date: 20230501
  Transmission Date: 20230722
  Serious: Yes (Other)
  Sender: FDA-Public Use
  Company Number: US-Larken Laboratories, Inc.-2140966

PATIENT
  Age: 65 Year
  Sex: Female
  Weight: 61.364 kg

DRUGS (1)
  1. DOXYCYCLINE HYCLATE [Suspect]
     Active Substance: DOXYCYCLINE HYCLATE
     Indication: Pneumonia

REACTIONS (1)
  - Pancreatitis [Recovered/Resolved]
